FAERS Safety Report 8078747-8 (Version None)
Quarter: 2012Q1

REPORT INFORMATION
  Report Type: 
  Country: None (occurrence: None)
  Receive Date: 20120125
  Receipt Date: 20120119
  Transmission Date: 20120608
  Serious: Yes (Hospitalization, Other)
  Sender: FDA-Public Use
  Company Number: 2011SP030601

PATIENT
  Age: 35 Year
  Sex: Female
  Weight: 79.3795 kg

DRUGS (3)
  1. CIPROFLOXACIN [Suspect]
     Indication: URINARY TRACT INFECTION
  2. NUVARING [Suspect]
     Indication: CONTRACEPTION
     Dates: start: 20080602, end: 20080721
  3. NUVARING [Suspect]
     Indication: OVARIAN CYST
     Dates: start: 20080602, end: 20080721

REACTIONS (16)
  - MENTAL DISORDER [None]
  - COAGULOPATHY [None]
  - DYSFUNCTIONAL UTERINE BLEEDING [None]
  - CEREBROVASCULAR ACCIDENT [None]
  - DEEP VEIN THROMBOSIS [None]
  - ANXIETY [None]
  - URINARY TRACT INFECTION [None]
  - PULMONARY EMBOLISM [None]
  - MUSCLE SPASMS [None]
  - EMOTIONAL DISORDER [None]
  - NIGHT SWEATS [None]
  - INTERVERTEBRAL DISC PROTRUSION [None]
  - WEIGHT INCREASED [None]
  - SOCIAL PHOBIA [None]
  - DEPRESSION [None]
  - CARPAL TUNNEL SYNDROME [None]
